FAERS Safety Report 25851881 (Version 1)
Quarter: 2025Q3

REPORT INFORMATION
  Report Type: Report from Study
  Country: US (occurrence: US)
  Receive Date: 20250926
  Receipt Date: 20250926
  Transmission Date: 20251021
  Serious: Yes (Other)
  Sender: SIGMA TAU
  Company Number: US-LEADIANT GMBH-2025LBI000241

PATIENT
  Age: 65 Year
  Sex: Male
  Weight: 90 kg

DRUGS (12)
  1. MATULANE [Suspect]
     Active Substance: PROCARBAZINE HYDROCHLORIDE
     Indication: Central nervous system lymphoma
     Route: 048
     Dates: start: 20250517
  2. MATULANE [Suspect]
     Active Substance: PROCARBAZINE HYDROCHLORIDE
     Route: 048
     Dates: start: 20250520
  3. MATULANE [Suspect]
     Active Substance: PROCARBAZINE HYDROCHLORIDE
     Route: 048
  4. MATULANE [Suspect]
     Active Substance: PROCARBAZINE HYDROCHLORIDE
     Route: 048
     Dates: start: 20250616
  5. MATULANE [Suspect]
     Active Substance: PROCARBAZINE HYDROCHLORIDE
     Route: 048
     Dates: start: 20250617
  6. TIRABRUTINIB [Concomitant]
     Active Substance: TIRABRUTINIB
     Indication: Central nervous system lymphoma
     Route: 048
     Dates: start: 20250516, end: 20250516
  7. TIRABRUTINIB [Concomitant]
     Active Substance: TIRABRUTINIB
     Route: 048
     Dates: start: 20250523, end: 20250523
  8. RITUXIMAB [Concomitant]
     Active Substance: RITUXIMAB
     Indication: Central nervous system lymphoma
     Route: 042
     Dates: start: 20250516
  9. METHOTREXATE [Concomitant]
     Active Substance: METHOTREXATE
     Indication: Central nervous system lymphoma
     Dates: start: 20250517
  10. VINCRISTINE [Concomitant]
     Active Substance: VINCRISTINE
     Indication: Central nervous system lymphoma
     Route: 042
     Dates: start: 20250517
  11. TRAMADOL HCL [Concomitant]
     Active Substance: TRAMADOL HYDROCHLORIDE
     Dates: start: 20250606
  12. PREDNISONE [Concomitant]
     Active Substance: PREDNISONE
     Dates: start: 20250605, end: 20250612

REACTIONS (2)
  - Liver function test increased [Recovered/Resolved]
  - Liver function test increased [Recovered/Resolved]

NARRATIVE: CASE EVENT DATE: 20250520
